FAERS Safety Report 6954910-1 (Version None)
Quarter: 2010Q3

REPORT INFORMATION
  Report Type: 
  Country: None (occurrence: None)
  Receive Date: 20100830
  Receipt Date: 20100810
  Transmission Date: 20110219
  Serious: Yes (Other)
  Sender: FDA-Public Use
  Company Number: PHHY2010US52860

PATIENT
  Sex: Male
  Weight: 102.7 kg

DRUGS (4)
  1. ZOMETA [Suspect]
     Indication: MULTIPLE MYELOMA
     Dosage: 4 MG, QMO
     Route: 042
     Dates: start: 20051020, end: 20061212
  2. AMOXICILLIN [Concomitant]
     Dosage: 500 MG, Q 6 HOUR
     Route: 048
     Dates: start: 20061204, end: 20061211
  3. REVLIMID [Concomitant]
     Dosage: UNK
  4. DECADRON [Concomitant]

REACTIONS (3)
  - FRACTURE [None]
  - GINGIVAL DISORDER [None]
  - OSTEONECROSIS OF JAW [None]
